FAERS Safety Report 6092204-X (Version None)
Quarter: 2009Q1

REPORT INFORMATION
  Report Type: 
  Country: None (occurrence: None)
  Receive Date: 20090223
  Receipt Date: 20090223
  Transmission Date: 20090719
  Serious: No
  Sender: FDA-Public Use
  Company Number: None

PATIENT

DRUGS (1)
  1. SENSORCAINE [Suspect]
     Indication: SPINAL ANAESTHESIA
     Dosage: 2 ML ONE TIME UNK
     Route: 065
     Dates: start: 20090101, end: 20090222

REACTIONS (2)
  - DRUG EFFECT DECREASED [None]
  - PRODUCT QUALITY ISSUE [None]
